FAERS Safety Report 7658459-2 (Version None)
Quarter: 2011Q3

REPORT INFORMATION
  Report Type: 
  Country: None (occurrence: None)
  Receive Date: 20110805
  Receipt Date: 20110803
  Transmission Date: 20111222
  Serious: No
  Sender: FDA-Public Use
  Company Number: US-PFIZER INC-2011178496

PATIENT
  Sex: Male

DRUGS (4)
  1. LYRICA [Suspect]
     Indication: NEURALGIA
     Dosage: 75 MG, 2X/DAY
     Route: 048
     Dates: start: 20060101
  2. NORCO [Concomitant]
     Indication: NEURALGIA
     Dosage: 10/325MG HALF TO ONE TABLET EVERY 4-6 HOURS
     Route: 048
  3. LYRICA [Suspect]
     Dosage: 150 MG, 2X/DAY
     Route: 048
  4. FLEXERIL [Concomitant]
     Indication: NEURALGIA
     Dosage: 10 MG, 3X/DAY

REACTIONS (1)
  - DRUG INEFFECTIVE [None]
